FAERS Safety Report 6243531-4 (Version None)
Quarter: 2009Q2

REPORT INFORMATION
  Report Type: 
  Country: None (occurrence: None)
  Receive Date: 20090624
  Receipt Date: 20090615
  Transmission Date: 20091009
  Serious: Yes (Hospitalization, Other)
  Sender: FDA-Public Use
  Company Number: PHHO2009US02025

PATIENT
  Sex: Female
  Weight: 48.3 kg

DRUGS (5)
  1. CGP 57148B T35717+ [Suspect]
     Indication: SYSTEMIC SCLEROSIS
     Dosage: UNK
     Dates: start: 20080414, end: 20090218
  2. CGP 57148B T35717+ [Suspect]
     Dosage: 200 MG, QD
     Route: 048
     Dates: start: 20090219, end: 20090325
  3. CGP 57148B T35717+ [Suspect]
     Dosage: 200 MG, QD
     Route: 048
     Dates: end: 20090417
  4. ASPIRIN [Concomitant]
  5. PLAVIX [Concomitant]

REACTIONS (22)
  - ASTHENIA [None]
  - ATRIAL FIBRILLATION [None]
  - ATRIAL FLUTTER [None]
  - BLOOD CREATININE INCREASED [None]
  - CARDIAC DISORDER [None]
  - CARDIAC FAILURE [None]
  - CARDIAC FAILURE CONGESTIVE [None]
  - CARDIOMYOPATHY [None]
  - CLOSTRIDIAL INFECTION [None]
  - DEHYDRATION [None]
  - DIARRHOEA [None]
  - DYSPNOEA [None]
  - LEFT VENTRICULAR DYSFUNCTION [None]
  - MYOCARDIAL ISCHAEMIA [None]
  - NAUSEA [None]
  - PLEURAL EFFUSION [None]
  - RENAL DISORDER [None]
  - RENAL FAILURE ACUTE [None]
  - RENIN INCREASED [None]
  - SCLERODERMA [None]
  - TACHYARRHYTHMIA [None]
  - VOMITING [None]
